FAERS Safety Report 8322044-X (Version None)
Quarter: 2012Q2

REPORT INFORMATION
  Report Type: 
  Country: None (occurrence: None)
  Receive Date: 20120430
  Receipt Date: 20120425
  Transmission Date: 20120825
  Serious: Yes (Other)
  Sender: FDA-Public Use
  Company Number: CA-ROCHE-1063859

PATIENT
  Sex: Male
  Weight: 78.5 kg

DRUGS (3)
  1. DEXAMETHASONE [Concomitant]
  2. RANITIDINE [Concomitant]
  3. AVASTIN [Suspect]
     Indication: GLIOBLASTOMA
     Route: 042
     Dates: start: 20120410

REACTIONS (1)
  - WEIGHT INCREASED [None]
